FAERS Safety Report 21893234 (Version 1)
Quarter: 2023Q1

REPORT INFORMATION
  Report Type: Spontaneous
  Country: US (occurrence: US)
  Receive Date: 20230121
  Receipt Date: 20230121
  Transmission Date: 20230418
  Serious: Yes (Death, Other)
  Sender: FDA-Public Use
  Company Number: US-AMGEN-USASP2023008190

PATIENT
  Age: 47 Year
  Sex: Male

DRUGS (2)
  1. BLINCYTO [Suspect]
     Active Substance: BLINATUMOMAB
     Indication: Philadelphia positive acute lymphocytic leukaemia
     Dosage: SIX CYCLES
     Route: 065
  2. PONATINIB [Concomitant]
     Active Substance: PONATINIB
     Indication: Philadelphia positive acute lymphocytic leukaemia
     Dosage: UNK

REACTIONS (7)
  - Death [Fatal]
  - Acute lymphocytic leukaemia recurrent [Unknown]
  - Neutropenic colitis [Unknown]
  - Epithelioid mesothelioma [Unknown]
  - Metastases to bone [Unknown]
  - Hepatosplenomegaly [Unknown]
  - General physical health deterioration [Unknown]
